FAERS Safety Report 12211833 (Version 2)
Quarter: 2016Q3

REPORT INFORMATION
  Report Type: Report from Study
  Country: CO (occurrence: CO)
  Receive Date: 20160325
  Receipt Date: 20160929
  Transmission Date: 20161109
  Serious: Yes (Death, Hospitalization, Other)
  Sender: FDA-Public Use
  Company Number: CO-JNJFOC-20160318208

PATIENT
  Age: 65 Year
  Sex: Male
  Weight: 64 kg

DRUGS (2)
  1. ZYTIGA [Suspect]
     Active Substance: ABIRATERONE ACETATE
     Indication: PROSTATE CANCER
     Route: 048
     Dates: start: 20151230
  2. PREDNISOLONE. [Concomitant]
     Active Substance: PREDNISOLONE
     Indication: PROSTATE CANCER
     Route: 048
     Dates: start: 20151230

REACTIONS (8)
  - Liver disorder [Unknown]
  - Arterial occlusive disease [Unknown]
  - Oedema peripheral [Not Recovered/Not Resolved]
  - Inflammation [Not Recovered/Not Resolved]
  - Metastases to bone [Unknown]
  - Death [Fatal]
  - Melaena [Unknown]
  - Haematuria [Unknown]

NARRATIVE: CASE EVENT DATE: 20160215
